FAERS Safety Report 4885632-9 (Version None)
Quarter: 2005Q4

REPORT INFORMATION
  Report Type: 
  Country: None (occurrence: None)
  Receive Date: 20051220
  Receipt Date: 20050808
  Transmission Date: 20060501
  Serious: Yes (Other)
  Sender: FDA-Public Use
  Company Number: HQWYE795709AUG05

PATIENT
  Age: 56 Year
  Sex: Male
  Weight: 102.15 kg

DRUGS (6)
  1. EFFEXOR XR [Suspect]
     Indication: DEPRESSION
     Dosage: 37.5 MG 1X PER 1 DAY, ORAL
     Route: 048
     Dates: start: 20050802, end: 20050806
  2. LOPRESSOR [Concomitant]
  3. METOPROLOL (METOPROLOL) [Concomitant]
  4. PLAVIX [Concomitant]
  5. ASPIRIN [Concomitant]
  6. TRAZODONE (TRAZODONE) [Concomitant]

REACTIONS (5)
  - ASTHENIA [None]
  - DIZZINESS [None]
  - HOT FLUSH [None]
  - LOSS OF CONSCIOUSNESS [None]
  - MOOD SWINGS [None]
